FAERS Safety Report 19545939 (Version 1)
Quarter: 2021Q3

REPORT INFORMATION
  Report Type: Report from Study
  Country: MX (occurrence: MX)
  Receive Date: 20210714
  Receipt Date: 20210714
  Transmission Date: 20211014
  Serious: Yes (Hospitalization, Other)
  Sender: FDA-Public Use
  Company Number: MX-ASTRAZENECA-2021A574207

PATIENT
  Sex: Male
  Weight: 121 kg

DRUGS (1)
  1. IRESSA [Suspect]
     Active Substance: GEFITINIB
     Indication: LUNG NEOPLASM MALIGNANT
     Route: 048
     Dates: start: 20180718, end: 20210626

REACTIONS (3)
  - Drug ineffective [Unknown]
  - Pericardial effusion [Unknown]
  - Malignant neoplasm progression [Unknown]
